FAERS Safety Report 6436006-0 (Version None)
Quarter: 2009Q4

REPORT INFORMATION
  Report Type: 
  Country: None (occurrence: None)
  Receive Date: 20091111
  Receipt Date: 20091102
  Transmission Date: 20100525
  Serious: Yes (Other)
  Sender: FDA-Public Use
  Company Number: CA-JNJFOC-20091100921

PATIENT
  Sex: Female

DRUGS (5)
  1. TOPAMAX [Suspect]
     Dosage: 37.5 MG IN MORNING AND 50 MG AT HOUR OF SLEEP
     Route: 065
  2. TOPAMAX [Suspect]
     Dosage: 75 MG IN MORNING AND 75MG AT HOUR OF SLEEP
     Route: 065
  3. TOPAMAX [Suspect]
     Indication: EPILEPSY
     Dosage: 37.5 MG IN MORNING AND 50 MG AT HOUR OF SLEEP
     Route: 065
  4. TOPIRAMATE [Suspect]
     Indication: EPILEPSY
  5. FRISIUM [Concomitant]

REACTIONS (11)
  - AGGRESSION [None]
  - COORDINATION ABNORMAL [None]
  - DECREASED APPETITE [None]
  - DRUG INEFFECTIVE [None]
  - DYSGEUSIA [None]
  - EPILEPSY [None]
  - EYE DISORDER [None]
  - FATIGUE [None]
  - PRODUCT SUBSTITUTION ISSUE [None]
  - RASH [None]
  - SOMNOLENCE [None]
